FAERS Safety Report 8801531 (Version 2)
Quarter: 2014Q2

REPORT INFORMATION
  Report Type: Report from Study
  Country: SE (occurrence: SE)
  Receive Date: 20120921
  Receipt Date: 20140529
  Transmission Date: 20141212
  Serious: Yes (Hospitalization, Other)
  Sender: FDA-Public Use
  Company Number: SE-JNJFOC-20120907230

PATIENT
  Sex: Male
  Weight: 62 kg

DRUGS (5)
  1. REMICADE [Suspect]
     Indication: COLITIS ULCERATIVE
     Route: 042
  2. REMICADE [Suspect]
     Indication: COLITIS ULCERATIVE
     Route: 042
     Dates: end: 20110621
  3. REMICADE [Suspect]
     Indication: COLITIS ULCERATIVE
     Route: 042
     Dates: start: 20120411
  4. AZATHIOPRINE [Concomitant]
     Indication: COLITIS ULCERATIVE
     Dosage: FREQUENCY: 1
     Route: 048
  5. MESALAZINE [Concomitant]
     Indication: COLITIS ULCERATIVE
     Dosage: FREQUENCY: 3X2

REACTIONS (2)
  - Colitis ulcerative [Recovered/Resolved]
  - Fungal infection [Not Recovered/Not Resolved]
